FAERS Safety Report 6349893-1 (Version None)
Quarter: 2009Q3

REPORT INFORMATION
  Report Type: 
  Country: None (occurrence: None)
  Receive Date: 20090911
  Receipt Date: 20090902
  Transmission Date: 20100115
  Serious: Yes (Other)
  Sender: FDA-Public Use
  Company Number: GB-ABBOTT-09P-167-0595002-00

PATIENT
  Sex: Male

DRUGS (9)
  1. DEPAKOTE [Suspect]
     Indication: BIPOLAR DISORDER
     Route: 048
     Dates: start: 20080801, end: 20081001
  2. DEPAKOTE [Suspect]
     Indication: AFFECTIVE DISORDER
  3. AMLODIPINE [Concomitant]
     Indication: CARDIOVASCULAR DISORDER
     Route: 048
  4. OLANZAPINE [Concomitant]
     Indication: MANIA
     Route: 048
  5. VENLAFAXINE HCL [Concomitant]
     Indication: DEPRESSION
     Route: 048
  6. OXYCODONE [Concomitant]
     Indication: DRUG USE FOR UNKNOWN INDICATION
  7. ASPIRIN [Concomitant]
     Indication: CARDIOVASCULAR DISORDER
     Route: 048
  8. ATORVASTATIN CALCIUM [Concomitant]
     Indication: CARDIOVASCULAR DISORDER
     Route: 048
  9. DIOVAN HCT [Concomitant]
     Indication: DRUG USE FOR UNKNOWN INDICATION

REACTIONS (2)
  - OEDEMA PERIPHERAL [None]
  - PULMONARY OEDEMA [None]
